FAERS Safety Report 8441687-6 (Version None)
Quarter: 2012Q2

REPORT INFORMATION
  Report Type: 
  Country: None (occurrence: None)
  Receive Date: 20120615
  Receipt Date: 20120522
  Transmission Date: 20120825
  Serious: Yes (Disabling)
  Sender: FDA-Public Use
  Company Number: FR-B.I. PHARMACEUTICALS,INC./RIDGEFIELD-2012-FF-00617FF

PATIENT
  Sex: Female
  Weight: 65 kg

DRUGS (5)
  1. AMOXICILLIN AND CLAVULANATE POTASSIUM [Concomitant]
     Dosage: 1G/125MG 3 G PER DAY
  2. PREDNISOLONE [Concomitant]
     Dosage: 60MG (3 DAYS) + 40MG (2DAYS) +20MG (5DAYS)
     Route: 048
  3. BRICANYL [Concomitant]
     Indication: BRONCHITIS
     Dosage: 5MG/2ML
     Route: 055
     Dates: start: 20120317
  4. ATROVENT [Suspect]
     Indication: BRONCHITIS
     Dosage: 0.5MG/0.2ML
     Route: 055
     Dates: start: 20120317
  5. OXYGENOTHERAPY [Concomitant]

REACTIONS (2)
  - ANOSMIA [None]
  - AGEUSIA [None]
